FAERS Safety Report 7167204-9 (Version None)
Quarter: 2010Q4

REPORT INFORMATION
  Report Type: 
  Country: None (occurrence: None)
  Receive Date: 20101213
  Receipt Date: 20101213
  Transmission Date: 20110411
  Serious: Yes (Hospitalization)
  Sender: FDA-Public Use
  Company Number: None

PATIENT
  Age: 54 Year
  Sex: Female
  Weight: 113.7 kg

DRUGS (1)
  1. DOXYCYCLINE [Suspect]
     Indication: INFECTION
     Dosage: 100 MG BID PO
     Route: 048
     Dates: start: 20100929, end: 20101005

REACTIONS (4)
  - INTERNATIONAL NORMALISED RATIO INCREASED [None]
  - NEPHROPATHY TOXIC [None]
  - RENAL FAILURE ACUTE [None]
  - TUBULOINTERSTITIAL NEPHRITIS [None]
